FAERS Safety Report 9085130 (Version 1)
Quarter: 2013Q1

REPORT INFORMATION
  Report Type: Spontaneous
  Country: US (occurrence: US)
  Receive Date: 20130130
  Receipt Date: 20130130
  Transmission Date: 20140127
  Serious: Yes (Disabling, Other)
  Sender: FDA-Public Use
  Company Number: PHEH2013US002180

PATIENT
  Sex: Female

DRUGS (3)
  1. ZOMETA [Suspect]
  2. REVLIMID [Suspect]
     Indication: PLASMA CELL MYELOMA
     Dosage: 25 MG,FROM DAY 1 THROUGH 21 CYCLES EVERY 29 DAYS
     Route: 048
     Dates: start: 20121108
  3. REVLIMID [Suspect]
     Dosage: 25 MG, UNK
     Route: 048

REACTIONS (15)
  - Cardiac failure congestive [Unknown]
  - Fall [Unknown]
  - Back injury [Unknown]
  - Skin irritation [Unknown]
  - Swelling [Unknown]
  - Nasopharyngitis [Unknown]
  - Blood calcium decreased [Unknown]
  - Blood potassium decreased [Unknown]
  - Blood electrolytes decreased [Unknown]
  - Pain in extremity [Unknown]
  - Chest pain [Unknown]
  - Pain [Unknown]
  - Pruritus [Unknown]
  - Fatigue [Unknown]
  - Asthenia [Unknown]
